FAERS Safety Report 5935025-8 (Version None)
Quarter: 2008Q4

REPORT INFORMATION
  Report Type: 
  Country: None (occurrence: None)
  Receive Date: 20081028
  Receipt Date: 20081020
  Transmission Date: 20090506
  Serious: Yes (Other)
  Sender: FDA-Public Use
  Company Number: POMP-1000354

PATIENT
  Age: 33 Year
  Sex: Female
  Weight: 51.2 kg

DRUGS (3)
  1. MYOZYME [Suspect]
     Indication: GLYCOGEN STORAGE DISEASE TYPE II
     Dosage: 1000 MG/DAY, Q2W, INTRAVENOUS
     Route: 042
     Dates: start: 20080201, end: 20081009
  2. CHLORPHENIRAMINE MALEATE [Concomitant]
  3. ACETAMINOPHEN [Concomitant]

REACTIONS (7)
  - DIZZINESS [None]
  - FALL [None]
  - HEART RATE DECREASED [None]
  - HYPOTENSION [None]
  - INFUSION RELATED REACTION [None]
  - PALLOR [None]
  - SYNCOPE [None]
